FAERS Safety Report 20073276 (Version 1)
Quarter: 2021Q4

REPORT INFORMATION
  Report Type: Spontaneous
  Country: GB (occurrence: GB)
  Receive Date: 20211116
  Receipt Date: 20211116
  Transmission Date: 20220304
  Serious: Yes (Other)
  Sender: FDA-Public Use
  Company Number: None

PATIENT
  Age: 44 Year
  Sex: Male
  Weight: 72 kg

DRUGS (9)
  1. PENICILLIN V [Suspect]
     Active Substance: PENICILLIN V
     Indication: Ill-defined disorder
     Dosage: UNK
     Route: 065
     Dates: start: 20210416
  2. CHLORDIAZEPOXIDE [Concomitant]
     Active Substance: CHLORDIAZEPOXIDE
     Indication: Ill-defined disorder
     Dosage: VARIABLE DOSE
     Route: 065
     Dates: start: 20210415
  3. COCODAMOL [Concomitant]
     Active Substance: ACETAMINOPHEN\CODEINE PHOSPHATE
     Indication: Ill-defined disorder
     Dosage: 2 DF
     Route: 065
     Dates: start: 20210415
  4. LANSOPRAZOLE [Concomitant]
     Active Substance: LANSOPRAZOLE
     Indication: Ill-defined disorder
     Dosage: 1 DF
     Route: 065
     Dates: start: 20210419
  5. LOPERAMIDE [Concomitant]
     Active Substance: LOPERAMIDE
     Indication: Ill-defined disorder
     Dosage: 1-2 DF
     Route: 065
     Dates: start: 20210415
  6. MEBEVERINE HYDROCHLORIDE [Concomitant]
     Active Substance: MEBEVERINE HYDROCHLORIDE
     Indication: Ill-defined disorder
     Dosage: 1 DF
     Route: 065
     Dates: start: 20210415
  7. METOCLOPRAMIDE [Concomitant]
     Active Substance: METOCLOPRAMIDE
     Indication: Ill-defined disorder
     Dosage: 1 DF
     Route: 065
     Dates: start: 20210415
  8. RIVAROXABAN [Concomitant]
     Active Substance: RIVAROXABAN
     Indication: Ill-defined disorder
     Dosage: 1 DF
     Route: 065
     Dates: start: 20210417
  9. THIAMINE [Concomitant]
     Active Substance: THIAMINE
     Indication: Ill-defined disorder
     Dosage: 2 DF
     Route: 065
     Dates: start: 20210415

REACTIONS (1)
  - Hypersensitivity [Unknown]

NARRATIVE: CASE EVENT DATE: 20210419
